FAERS Safety Report 8167163-6 (Version None)
Quarter: 2012Q1

REPORT INFORMATION
  Report Type: 
  Country: None (occurrence: None)
  Receive Date: 20120227
  Receipt Date: 20120215
  Transmission Date: 20120608
  Serious: Yes (Other)
  Sender: FDA-Public Use
  Company Number: US-JNJFOC-20120208527

PATIENT
  Age: 45 Year
  Sex: Female
  Weight: 107.05 kg

DRUGS (8)
  1. EXTRA STRENGTH TYLENOL PM GELTABS [Suspect]
     Indication: PAIN
     Dosage: AS NEEDED
     Route: 048
     Dates: end: 20120201
  2. ACETAMINOPHEN [Suspect]
     Indication: RHEUMATOID ARTHRITIS
     Dosage: AS NEEDED
     Route: 048
  3. MULTI-VITAMINS [Concomitant]
     Indication: NUTRITIONAL SUPPORT
     Dosage: 2-3 YEARS
     Route: 065
  4. ACETAMINOPHEN [Suspect]
     Indication: HEADACHE
     Dosage: AS NEEDED
     Route: 048
  5. LIPITOR [Concomitant]
     Indication: THROMBOSIS
     Route: 065
     Dates: start: 20120101
  6. PRIMIDONE [Concomitant]
     Indication: CONVULSION
     Dosage: SINCE AGE 14
     Route: 065
  7. EXTRA STRENGTH TYLENOL PM GELTABS [Suspect]
     Indication: SLEEP DISORDER THERAPY
     Dosage: AS NEEDED
     Route: 048
     Dates: end: 20120201
  8. WARFARIN SODIUM [Suspect]
     Indication: THROMBOSIS PROPHYLAXIS
     Route: 065
     Dates: start: 20070501, end: 20120101

REACTIONS (10)
  - PRODUCT QUALITY ISSUE [None]
  - FALL [None]
  - CONSTIPATION [None]
  - SKIN DISCOLOURATION [None]
  - FEELING OF BODY TEMPERATURE CHANGE [None]
  - DIZZINESS [None]
  - ULCER HAEMORRHAGE [None]
  - EYE PAIN [None]
  - VOMITING [None]
  - DRY MOUTH [None]
